FAERS Safety Report 18705754 (Version 2)
Quarter: 2021Q1

REPORT INFORMATION
  Report Type: Spontaneous
  Country: US (occurrence: US)
  Receive Date: 20210106
  Receipt Date: 20210113
  Transmission Date: 20210419
  Serious: Yes (Other)
  Sender: FDA-Public Use
  Company Number: US-GLENMARK PHARMACEUTICALS-2020GMK051462

PATIENT
  Age: 52 Year
  Sex: Female

DRUGS (4)
  1. TACROLIMUS. [Suspect]
     Active Substance: TACROLIMUS
     Indication: IMMUNOSUPPRESSION
     Dosage: UNK; (AS REPORTED, FK506); FOR MAINTENANCE
     Route: 065
  2. MYCOPHENOLATE [Suspect]
     Active Substance: MYCOPHENOLIC ACID
     Indication: IMMUNOSUPPRESSION
     Dosage: UNK; FOR MAINTENANCE
     Route: 065
  3. PREDNISONE. [Suspect]
     Active Substance: PREDNISONE
     Indication: IMMUNOSUPPRESSION
     Dosage: UNK; FOR MAINTENANCE
     Route: 065
  4. ANTITHYMOCYTE IMMUNOGLOBULIN [Suspect]
     Active Substance: THYMOCYTE IMMUNE GLOBULIN NOS
     Indication: IMMUNOSUPPRESSION
     Dosage: UNK; USED FOR INDUCTION
     Route: 065

REACTIONS (6)
  - Tubulointerstitial nephritis [Recovering/Resolving]
  - Focal segmental glomerulosclerosis [Recovering/Resolving]
  - Chronic allograft nephropathy [Recovering/Resolving]
  - Thrombotic microangiopathy [Recovering/Resolving]
  - Cytomegalovirus viraemia [Recovering/Resolving]
  - Myelosuppression [Recovering/Resolving]
